FAERS Safety Report 15851162 (Version 3)
Quarter: 2019Q1

REPORT INFORMATION
  Report Type: Report from Study
  Country: None (occurrence: CH)
  Receive Date: 20190122
  Receipt Date: 20190304
  Transmission Date: 20190417
  Serious: Yes (Hospitalization)
  Sender: FDA-Public Use
  Company Number: CH-ABBVIE-18S-151-2503213-00

PATIENT
  Sex: Male
  Weight: 79 kg

DRUGS (4)
  1. DUODOPA [Suspect]
     Active Substance: CARBIDOPA\LEVODOPA
     Dosage: MD 12ML, CR DAY 3ML/H, ED 1.8ML, 16H THERAPY
     Route: 050
     Dates: start: 20170929, end: 20171020
  2. DUODOPA [Suspect]
     Active Substance: CARBIDOPA\LEVODOPA
     Route: 050
  3. DUODOPA [Suspect]
     Active Substance: CARBIDOPA\LEVODOPA
     Indication: PARKINSON^S DISEASE
     Route: 050
     Dates: start: 20120716, end: 20170929
  4. DUODOPA [Suspect]
     Active Substance: CARBIDOPA\LEVODOPA
     Dosage: MD 11ML, CR DAY 3ML/H, ED 1.8ML, 16H THERAPY
     Route: 050
     Dates: start: 20171020

REACTIONS (7)
  - Dyskinesia [Unknown]
  - Akinesia [Unknown]
  - On and off phenomenon [Unknown]
  - Fall [Unknown]
  - Periprosthetic fracture [Unknown]
  - Hyperkinesia [Unknown]
  - Hallucination [Not Recovered/Not Resolved]
